FAERS Safety Report 7509889-0 (Version None)
Quarter: 2011Q2

REPORT INFORMATION
  Report Type: 
  Country: None (occurrence: None)
  Receive Date: 20110527
  Receipt Date: 20110512
  Transmission Date: 20111010
  Serious: Yes (Disabling, Other)
  Sender: FDA-Public Use
  Company Number: US-BAYER-201041585NA

PATIENT
  Sex: Female

DRUGS (12)
  1. GADOLINIUM IN UNSPECIFIED DRUG [Suspect]
     Dates: start: 20020824, end: 20020824
  2. GADOLINIUM IN UNSPECIFIED DRUG [Suspect]
     Dates: start: 20040517, end: 20040517
  3. GADOLINIUM IN UNSPECIFIED DRUG [Suspect]
     Dates: start: 20080225, end: 20080225
  4. GADOLINIUM IN UNSPECIFIED DRUG [Suspect]
     Dates: start: 20040716, end: 20040716
  5. PROHANCE [Suspect]
     Indication: IMAGING PROCEDURE
  6. GADOLINIUM IN UNSPECIFIED DRUG [Suspect]
     Dates: start: 20050525, end: 20050525
  7. MULTIHANCE [Suspect]
     Indication: IMAGING PROCEDURE
  8. GADOLINIUM IN UNSPECIFIED DRUG [Suspect]
     Dates: start: 20080604, end: 20080604
  9. OMNISCAN [Suspect]
     Indication: IMAGING PROCEDURE
  10. MAGNEVIST [Suspect]
     Indication: IMAGING PROCEDURE
  11. GADOLINIUM IN UNSPECIFIED DRUG [Suspect]
     Dates: start: 20040604, end: 20040604
  12. OPTIMARK [Suspect]
     Indication: IMAGING PROCEDURE

REACTIONS (6)
  - DEFORMITY [None]
  - NEPHROGENIC SYSTEMIC FIBROSIS [None]
  - FIBROSIS [None]
  - PAIN [None]
  - ANXIETY [None]
  - EMOTIONAL DISTRESS [None]
